FAERS Safety Report 10860967 (Version 1)
Quarter: 2015Q1

REPORT INFORMATION
  Report Type: Spontaneous
  Country: US (occurrence: None)
  Receive Date: 20150218
  Receipt Date: 20150218
  Transmission Date: 20150721
  Serious: Yes (Other)
  Sender: FDA-Public Use
  Company Number: None

PATIENT
  Age: 48 Year
  Sex: Female
  Weight: 75.3 kg

DRUGS (1)
  1. GENERIC CYMBALTA [Suspect]
     Active Substance: DULOXETINE HYDROCHLORIDE
     Dosage: 60 MG 2 TABS QD

REACTIONS (7)
  - Apathy [None]
  - Poor personal hygiene [None]
  - Social avoidant behaviour [None]
  - Depression [None]
  - Product substitution issue [None]
  - Activities of daily living impaired [None]
  - Mood altered [None]

NARRATIVE: CASE EVENT DATE: 20140120
